FAERS Safety Report 7324740-X (Version None)
Quarter: 2011Q1

REPORT INFORMATION
  Report Type: 
  Country: None (occurrence: None)
  Receive Date: 20110301
  Receipt Date: 20110223
  Transmission Date: 20110831
  Serious: Yes (Other)
  Sender: FDA-Public Use
  Company Number: FR-GILEAD-2011-0036057

PATIENT
  Sex: Female
  Weight: 64 kg

DRUGS (6)
  1. AZT [Concomitant]
  2. COMBIVIR [Concomitant]
  3. VIRAMUNE [Concomitant]
     Dates: start: 20070101
  4. TARDYFERON B9 [Concomitant]
  5. KALETRA [Concomitant]
  6. TRUVADA [Suspect]
     Indication: HIV INFECTION
     Dates: start: 20070101

REACTIONS (4)
  - DRUG EXPOSURE DURING PREGNANCY [None]
  - APGAR SCORE LOW [None]
  - CAESAREAN SECTION [None]
  - PREGNANCY [None]
